FAERS Safety Report 6233394-5 (Version None)
Quarter: 2009Q2

REPORT INFORMATION
  Report Type: 
  Country: None (occurrence: None)
  Receive Date: 20090617
  Receipt Date: 20090615
  Transmission Date: 20091009
  Serious: Yes (Other)
  Sender: FDA-Public Use
  Company Number: ES-WYE-G03861609

PATIENT
  Age: 82 Year
  Sex: Male

DRUGS (1)
  1. TORISEL [Suspect]
     Indication: RENAL CANCER
     Dosage: UNKNOWN DOSE PER WEEK
     Route: 042
     Dates: start: 20081222

REACTIONS (1)
  - HYPERKALAEMIA [None]
